FAERS Safety Report 6494137-3 (Version None)
Quarter: 2009Q4

REPORT INFORMATION
  Report Type: 
  Country: None (occurrence: None)
  Receive Date: 20091214
  Receipt Date: 20090109
  Transmission Date: 20100525
  Serious: No
  Sender: FDA-Public Use
  Company Number: US-BRISTOL-MYERS SQUIBB COMPANY-14465124

PATIENT
  Age: 24 Year
  Sex: Female

DRUGS (2)
  1. ABILIFY [Suspect]
     Indication: MENTAL DISABILITY
  2. LITHIUM [Suspect]

REACTIONS (3)
  - ASTERIXIS [None]
  - COGWHEEL RIGIDITY [None]
  - TREMOR [None]
